FAERS Safety Report 7443430-6 (Version None)
Quarter: 2011Q2

REPORT INFORMATION
  Report Type: 
  Country: None (occurrence: None)
  Receive Date: 20110428
  Receipt Date: 20110413
  Transmission Date: 20111010
  Serious: No
  Sender: FDA-Public Use
  Company Number: US-B.I. PHARMACEUTICALS,INC./RIDGEFIELD-2011-BP-10846BP

PATIENT
  Sex: Female
  Weight: 124.74 kg

DRUGS (2)
  1. ZANTAC 75 [Suspect]
     Dosage: 150 MG
     Route: 048
     Dates: start: 20110413, end: 20110413
  2. ZANTAC 75 [Suspect]
     Indication: DYSPEPSIA
     Route: 048
     Dates: start: 20110301, end: 20110412

REACTIONS (3)
  - DYSPNOEA [None]
  - HEADACHE [None]
  - CHEST PAIN [None]
